FAERS Safety Report 5653514-0 (Version None)
Quarter: 2008Q1

REPORT INFORMATION
  Report Type: 
  Country: None (occurrence: None)
  Receive Date: 20080131
  Receipt Date: 20071009
  Transmission Date: 20080703
  Serious: No
  Sender: FDA-Public Use
  Company Number: US200710002621

PATIENT
  Age: 19 Year
  Sex: Male

DRUGS (1)
  1. BYETTA [Suspect]
     Dosage: DAILY (1/D)
     Dates: start: 20070101, end: 20070101

REACTIONS (2)
  - HIDRADENITIS [None]
  - INJECTION SITE PAPULE [None]
